FAERS Safety Report 7320826-4 (Version None)
Quarter: 2011Q1

REPORT INFORMATION
  Report Type: 
  Country: None (occurrence: None)
  Receive Date: 20110228
  Receipt Date: 20110216
  Transmission Date: 20110831
  Serious: Yes (Other)
  Sender: FDA-Public Use
  Company Number: GB-ROCHE-760414

PATIENT
  Age: 29 Year
  Sex: Female
  Weight: 102 kg

DRUGS (2)
  1. ORLISTAT [Suspect]
     Indication: OBESITY
     Route: 048
     Dates: start: 20101129, end: 20110207
  2. CERAZETTE [Suspect]
     Indication: CONTRACEPTION
     Route: 048
     Dates: start: 20101026, end: 20110207

REACTIONS (2)
  - NO ADVERSE EVENT [None]
  - PREGNANCY ON ORAL CONTRACEPTIVE [None]
